FAERS Safety Report 5279530-9 (Version None)
Quarter: 2007Q1

REPORT INFORMATION
  Report Type: 
  Country: None (occurrence: None)
  Receive Date: 20070328
  Receipt Date: 20070316
  Transmission Date: 20070707
  Serious: Yes (Disabling, Other)
  Sender: FDA-Public Use
  Company Number: GB-PFIZER INC-2007011185

PATIENT
  Age: 44 Year
  Sex: Female
  Weight: 88.9 kg

DRUGS (1)
  1. CHAMPIX [Suspect]
     Indication: EX-SMOKER
     Route: 048

REACTIONS (3)
  - URETHRAL ABSCESS [None]
  - URINARY RETENTION [None]
  - URINARY TRACT INFECTION [None]
